FAERS Safety Report 17899760 (Version 1)
Quarter: 2020Q2

REPORT INFORMATION
  Report Type: Spontaneous
  Country: US (occurrence: US)
  Receive Date: 20200615
  Receipt Date: 20200615
  Transmission Date: 20200714
  Serious: Yes (Hospitalization)
  Sender: FDA-Public Use
  Company Number: None

PATIENT
  Age: 66 Year
  Sex: Male
  Weight: 92 kg

DRUGS (8)
  1. CLOPIDOGREL [Concomitant]
     Active Substance: CLOPIDOGREL BISULFATE
  2. ATENOLOL/CHLORTHALIDONE [Concomitant]
     Active Substance: ATENOLOL\CHLORTHALIDONE
  3. MECLIZINE [Concomitant]
     Active Substance: MECLIZINE HYDROCHLORIDE
  4. ATORVASTATIN [Concomitant]
     Active Substance: ATORVASTATIN
  5. QUINAPRIL. [Concomitant]
     Active Substance: QUINAPRIL
  6. METFORMIN [Concomitant]
     Active Substance: METFORMIN HYDROCHLORIDE
  7. CANAGLIFLOZIN [Suspect]
     Active Substance: CANAGLIFLOZIN
     Indication: TYPE 2 DIABETES MELLITUS
     Route: 048
     Dates: start: 20200301
  8. VIAGRA [Concomitant]
     Active Substance: SILDENAFIL CITRATE

REACTIONS (7)
  - Vomiting [None]
  - Euglycaemic diabetic ketoacidosis [None]
  - Dizziness [None]
  - Balance disorder [None]
  - Nausea [None]
  - Lacunar infarction [None]
  - Dysarthria [None]

NARRATIVE: CASE EVENT DATE: 20200326
